FAERS Safety Report 6683998-0 (Version None)
Quarter: 2010Q2

REPORT INFORMATION
  Report Type: 
  Country: None (occurrence: None)
  Receive Date: 20100406
  Receipt Date: 20100225
  Transmission Date: 20101027
  Serious: No
  Sender: FDA-Public Use
  Company Number: 2010IP000017

PATIENT
  Age: 69 Year
  Sex: Female

DRUGS (4)
  1. BEPREVE (BEPOTASTINE BESILATE OPHTHALMIC SOLUTION) 1.5% [Suspect]
     Indication: DRY EYE
     Dosage: 1 GTT; BID; OPH
     Route: 047
     Dates: start: 20100224
  2. RESTASIS [Concomitant]
  3. DIOVAN [Concomitant]
  4. NEURONTIN [Concomitant]

REACTIONS (1)
  - PRODUCT TASTE ABNORMAL [None]
